FAERS Safety Report 20679158 (Version 2)
Quarter: 2022Q2

REPORT INFORMATION
  Report Type: Spontaneous
  Country: US (occurrence: US)
  Receive Date: 20220406
  Receipt Date: 20220420
  Transmission Date: 20220721
  Serious: Yes (Hospitalization, Other)
  Sender: FDA-Public Use
  Company Number: US-UNITED THERAPEUTICS-UNT-2022-007373

PATIENT
  Sex: Male

DRUGS (2)
  1. REMODULIN [Suspect]
     Active Substance: TREPROSTINIL
     Indication: Pulmonary arterial hypertension
     Dosage: UNK, CONTINUING
     Route: 041
     Dates: start: 20210617
  2. REMODULIN [Suspect]
     Active Substance: TREPROSTINIL
     Dosage: 0.222 ?G/KG, CONTINUING
     Route: 041

REACTIONS (2)
  - Device dislocation [Recovered/Resolved]
  - Eczema [Unknown]
